FAERS Safety Report 8266453-6 (Version None)
Quarter: 2012Q2

REPORT INFORMATION
  Report Type: 
  Country: None (occurrence: None)
  Receive Date: 20120406
  Receipt Date: 20120330
  Transmission Date: 20120825
  Serious: Yes (Other)
  Sender: FDA-Public Use
  Company Number: JP-MERCK-1203USA02505

PATIENT
  Age: 40 Year
  Sex: Female

DRUGS (1)
  1. PEPCID [Suspect]
     Indication: PREMEDICATION
     Route: 048

REACTIONS (2)
  - ANAPHYLACTIC SHOCK [None]
  - MATERNAL EXPOSURE DURING PREGNANCY [None]
